FAERS Safety Report 15741244 (Version 2)
Quarter: 2019Q1

REPORT INFORMATION
  Report Type: Spontaneous
  Country: US (occurrence: US)
  Receive Date: 20181219
  Receipt Date: 20190327
  Transmission Date: 20190417
  Serious: No
  Sender: FDA-Public Use
  Company Number: US-GLAXOSMITHKLINE-US2018221156

PATIENT
  Sex: Female

DRUGS (2)
  1. BENLYSTA [Suspect]
     Active Substance: BELIMUMAB
     Indication: PRODUCT USED FOR UNKNOWN INDICATION
     Route: 058
  2. ADDERALL [Concomitant]
     Active Substance: AMPHETAMINE ASPARTATE\AMPHETAMINE SULFATE\DEXTROAMPHETAMINE SACCHARATE\DEXTROAMPHETAMINE SULFATE

REACTIONS (9)
  - Nausea [Unknown]
  - Device leakage [Unknown]
  - Rash [Unknown]
  - Hypoaesthesia [Unknown]
  - Overdose [Unknown]
  - Injection site pain [Unknown]
  - Paraesthesia [Unknown]
  - Underdose [Unknown]
  - Exposure via skin contact [Unknown]
